FAERS Safety Report 15310317 (Version 1)
Quarter: 2018Q3

REPORT INFORMATION
  Report Type: Spontaneous
  Country: US (occurrence: US)
  Receive Date: 20180813
  Receipt Date: 20180813
  Transmission Date: 20181010
  Serious: No
  Sender: FDA-Public Use
  Company Number: None

PATIENT
  Sex: Female

DRUGS (5)
  1. BENZONATATE. [Concomitant]
     Active Substance: BENZONATATE
  2. AMOXICILLIN. [Concomitant]
     Active Substance: AMOXICILLIN
  3. ONDANSETRON [Concomitant]
     Active Substance: ONDANSETRON
  4. HYDROXYZ HCL [Concomitant]
     Active Substance: HYDROXYZINE HYDROCHLORIDE
  5. OCALIVA [Suspect]
     Active Substance: OBETICHOLIC ACID
     Indication: PRIMARY BILIARY CHOLANGITIS
     Route: 048
     Dates: start: 20180410

REACTIONS (2)
  - Therapy change [None]
  - Pruritus [None]
